FAERS Safety Report 6523699-2 (Version None)
Quarter: 2009Q4

REPORT INFORMATION
  Report Type: 
  Country: None (occurrence: None)
  Receive Date: 20091222
  Receipt Date: 20091215
  Transmission Date: 20100525
  Serious: Yes (Other)
  Sender: FDA-Public Use
  Company Number: SPV1-2009-02445

PATIENT
  Age: 77 Year
  Sex: Female

DRUGS (2)
  1. FOSRENOL [Suspect]
  2. NORMACOL /00086101/ (SULFAMETHOXAZOLE, TRIMETHOPRIM) [Concomitant]

REACTIONS (3)
  - POLYP [None]
  - RECTAL HAEMORRHAGE [None]
  - TREATMENT NONCOMPLIANCE [None]
